FAERS Safety Report 12412376 (Version 1)
Quarter: 2016Q2

REPORT INFORMATION
  Report Type: Spontaneous
  Country: US (occurrence: US)
  Receive Date: 20160527
  Receipt Date: 20160527
  Transmission Date: 20160815
  Serious: No
  Sender: FDA-Public Use
  Company Number: US-NORTHSTAR HEALTHCARE HOLDINGS-US-2016NSR000012

PATIENT

DRUGS (3)
  1. CLINDAMYCIN [Concomitant]
     Active Substance: CLINDAMYCIN\CLINDAMYCIN PHOSPHATE
     Indication: URINARY TRACT INFECTION
     Dosage: FREQUENCY UNKNOWN
  2. CIPROFLOXACIN HCL [Concomitant]
     Active Substance: CIPROFLOXACIN HYDROCHLORIDE
     Indication: URINARY TRACT INFECTION
     Dosage: FREQUENCY UNKNOWN
  3. HYDROXYZINE HYDROCHLORIDE. [Suspect]
     Active Substance: HYDROXYZINE HYDROCHLORIDE
     Indication: PRODUCT USED FOR UNKNOWN INDICATION
     Dosage: 50 ^GM,^ EVERY MORNING

REACTIONS (4)
  - Product substitution issue [Recovered/Resolved]
  - Urticaria [Unknown]
  - Product quality issue [Recovered/Resolved]
  - Rash [Unknown]
